FAERS Safety Report 6602932-2 (Version None)
Quarter: 2010Q1

REPORT INFORMATION
  Report Type: 
  Country: None (occurrence: None)
  Receive Date: 20100226
  Receipt Date: 20100217
  Transmission Date: 20100710
  Serious: Yes (Disabling)
  Sender: FDA-Public Use
  Company Number: GB-JNJFOC-20100207355

PATIENT
  Age: 45 Year
  Sex: Male
  Weight: 78 kg

DRUGS (4)
  1. DARUNAVIR [Suspect]
     Indication: DRUG USE FOR UNKNOWN INDICATION
     Route: 048
     Dates: start: 20080729
  2. RITONAVIR [Suspect]
     Indication: DRUG USE FOR UNKNOWN INDICATION
     Route: 065
     Dates: start: 20080729
  3. ISENTRESS [Concomitant]
     Indication: HIV INFECTION
     Route: 048
  4. ETRAVIRINE [Concomitant]
     Indication: DRUG USE FOR UNKNOWN INDICATION
     Route: 048

REACTIONS (2)
  - OEDEMA [None]
  - WEIGHT INCREASED [None]
